FAERS Safety Report 25898785 (Version 1)
Quarter: 2025Q4

REPORT INFORMATION
  Report Type: Spontaneous
  Country: US (occurrence: US)
  Receive Date: 20251009
  Receipt Date: 20251009
  Transmission Date: 20260119
  Serious: No
  Sender: PL DEVELOPMENTS
  Company Number: US-P+L Devolo-2186225

PATIENT

DRUGS (1)
  1. OMEPRAZOLE MAGNESIUM [Suspect]
     Active Substance: OMEPRAZOLE MAGNESIUM
     Indication: Product used for unknown indication

REACTIONS (4)
  - Pain [Unknown]
  - Product blister packaging issue [Unknown]
  - Product packaging difficult to open [Unknown]
  - Product package associated injury [Unknown]
